FAERS Safety Report 7434657-8 (Version None)
Quarter: 2011Q2

REPORT INFORMATION
  Report Type: 
  Country: None (occurrence: None)
  Receive Date: 20110425
  Receipt Date: 20110415
  Transmission Date: 20111010
  Serious: Yes (Other)
  Sender: FDA-Public Use
  Company Number: US-CEPHALON-2011001871

PATIENT
  Age: 39 Year
  Sex: Female

DRUGS (2)
  1. NUVIGIL [Suspect]
     Indication: CIRCADIAN RHYTHM SLEEP DISORDER
     Route: 048
     Dates: start: 20110401
  2. BIRTH CONTROL PILLS [Concomitant]
     Dates: start: 20110301

REACTIONS (2)
  - RASH [None]
  - HYPERSENSITIVITY [None]
